FAERS Safety Report 6779208-6 (Version None)
Quarter: 2010Q2

REPORT INFORMATION
  Report Type: 
  Country: None (occurrence: None)
  Receive Date: 20100618
  Receipt Date: 20100608
  Transmission Date: 20101027
  Serious: Yes (Hospitalization, Other)
  Sender: FDA-Public Use
  Company Number: US-NOVOPROD-309894

PATIENT
  Sex: Female
  Weight: 91.61 kg

DRUGS (4)
  1. NOVOLOG [Suspect]
     Indication: TYPE 2 DIABETES MELLITUS
     Dosage: SLIDING SCALE
     Route: 058
     Dates: start: 20100401
  2. LANTUS [Concomitant]
     Indication: TYPE 2 DIABETES MELLITUS
     Dosage: 14 IU, QD
     Route: 058
  3. COUMADIN [Concomitant]
     Indication: CARDIAC PACEMAKER INSERTION
     Dosage: UNKNOWN
     Route: 048
     Dates: start: 20080101
  4. NORVASC [Concomitant]
     Indication: CARDIAC DISORDER
     Dosage: UNKNOWN
     Route: 048

REACTIONS (5)
  - BLOOD GLUCOSE INCREASED [None]
  - BLOOD POTASSIUM DECREASED [None]
  - HEADACHE [None]
  - INFECTION [None]
  - PALPITATIONS [None]
